FAERS Safety Report 18237182 (Version 2)
Quarter: 2020Q3

REPORT INFORMATION
  Report Type: Spontaneous
  Country: US (occurrence: US)
  Receive Date: 20200907
  Receipt Date: 20200911
  Transmission Date: 20201103
  Serious: Yes (Death, Hospitalization, Other)
  Sender: FDA-Public Use
  Company Number: US-UCBSA-2020034148

PATIENT
  Age: 60 Year
  Sex: Female

DRUGS (6)
  1. SULFASALAZINE. [Concomitant]
     Active Substance: SULFASALAZINE
  2. PREDNISONE. [Suspect]
     Active Substance: PREDNISONE
     Indication: RHEUMATOID ARTHRITIS
     Dosage: 20?50 MG, ONCE DAILY (QD)
     Route: 048
     Dates: start: 2019
  3. PREDNISONE. [Suspect]
     Active Substance: PREDNISONE
     Indication: RHEUMATOID ARTHRITIS
     Dosage: 30?50 MG, ONCE DAILY (QD)
     Route: 042
  4. CIMZIA [Suspect]
     Active Substance: CERTOLIZUMAB PEGOL
     Indication: RHEUMATOID ARTHRITIS
     Dosage: 400 MILLIGRAM, EV 2 WEEKS(QOW)
     Route: 058
     Dates: start: 202007, end: 2020
  5. CIMZIA [Suspect]
     Active Substance: CERTOLIZUMAB PEGOL
     Dosage: 200 MILLIGRAM, EV 2 WEEKS(QOW)
     Route: 058
     Dates: start: 2020, end: 20200810
  6. HUMIRA [Concomitant]
     Active Substance: ADALIMUMAB
     Dosage: UNK
     Dates: end: 202007

REACTIONS (7)
  - Renal failure [Unknown]
  - Staphylococcal sepsis [Fatal]
  - Respiratory failure [Unknown]
  - Gastrointestinal haemorrhage [Fatal]
  - Shock haemorrhagic [Fatal]
  - Deep vein thrombosis [Fatal]
  - Platelet count decreased [Unknown]

NARRATIVE: CASE EVENT DATE: 20200810
